FAERS Safety Report 16087599 (Version 1)
Quarter: 2019Q1

REPORT INFORMATION
  Report Type: Spontaneous
  Country: US (occurrence: US)
  Receive Date: 20190319
  Receipt Date: 20190319
  Transmission Date: 20190418
  Serious: No
  Sender: FDA-Public Use
  Company Number: US-GLAXOSMITHKLINE-US2019045347

PATIENT
  Age: 39 Year
  Sex: Female

DRUGS (1)
  1. BENLYSTA [Suspect]
     Active Substance: BELIMUMAB
     Indication: PRODUCT USED FOR UNKNOWN INDICATION
     Dosage: UNK
     Route: 042
     Dates: end: 201810

REACTIONS (10)
  - Nausea [Unknown]
  - Vomiting [Unknown]
  - Memory impairment [Unknown]
  - Confusional state [Unknown]
  - Pain [Unknown]
  - Feeling abnormal [Unknown]
  - Headache [Unknown]
  - Malaise [Unknown]
  - Asthenia [Unknown]
  - Therapy cessation [Unknown]

NARRATIVE: CASE EVENT DATE: 201810
